FAERS Safety Report 8362402 (Version 3)
Quarter: 2012Q4

REPORT INFORMATION
  Report Type: 
  Country: US (occurrence: US)
  Receive Date: 20120130
  Receipt Date: 20121023
  Transmission Date: 20130627
  Serious: Yes (Death, Other)
  Sender: FDA-Public Use
  Company Number: US-ROCHE-1034426

PATIENT
  Sex: Male
  Weight: 81.27 kg

DRUGS (6)
  1. AVASTIN [Suspect]
     Indication: PRODUCT USED FOR UNKNOWN INDICATION
     Route: 065
  2. SUTENT [Concomitant]
  3. NEXAVAR [Concomitant]
  4. ZOMETA [Concomitant]
  5. TEMSIROLIMUS [Concomitant]
  6. NORVASC [Concomitant]

REACTIONS (3)
  - Death [Fatal]
  - Disease progression [Unknown]
  - Hypertension [Unknown]
